FAERS Safety Report 4287625-1 (Version None)
Quarter: 2004Q1

REPORT INFORMATION
  Report Type: 
  Country: None (occurrence: None)
  Receive Date: 20040205
  Receipt Date: 20040122
  Transmission Date: 20041129
  Serious: Yes (Death, Hospitalization, Other)
  Sender: FDA-Public Use
  Company Number: US-SHR-04-020112

PATIENT
  Age: 49 Year
  Sex: Male

DRUGS (6)
  1. CAMPATH [Suspect]
     Indication: STEM CELL TRANSPLANT
     Dosage: 30 MG TIW X 2 WEEKS, INTRAVENOUS
     Route: 042
     Dates: start: 20020311, end: 20020301
  2. DONOR LEUKOCYTE INFUSION [Suspect]
     Indication: BONE MARROW TRANSPLANT REJECTION
     Dosage: 02 JUL 2003 AND 18 SEP 2003, INTRAVENOUS
     Route: 042
  3. FLUDARA [Suspect]
     Indication: STEM CELL TRANSPLANT
     Dosage: 30 MG/M2 DAY - 4,3, 2, INTRAVENOUS
     Route: 042
     Dates: start: 20020401
  4. TOTAL BODY IRRADIATION [Suspect]
     Indication: STEM CELL TRANSPLANT
     Dosage: 200CGY DAY
     Dates: start: 20020401
  5. FK 506 (TACROLIMUS) [Concomitant]
  6. MMF [Concomitant]

REACTIONS (12)
  - ABDOMINAL PAIN [None]
  - ARTHRALGIA [None]
  - BONE MARROW TRANSPLANT REJECTION [None]
  - COLONIC HAEMORRHAGE [None]
  - CYTOMEGALOVIRUS INFECTION [None]
  - GRAFT VERSUS HOST DISEASE [None]
  - HYPOTENSION [None]
  - HYPOXIA [None]
  - LEGIONELLA INFECTION [None]
  - MYOSITIS [None]
  - STAPHYLOCOCCAL SEPSIS [None]
  - SYSTEMIC MYCOSIS [None]
